FAERS Safety Report 6943947-4 (Version None)
Quarter: 2010Q3

REPORT INFORMATION
  Report Type: 
  Country: None (occurrence: None)
  Receive Date: 20100826
  Receipt Date: 20100817
  Transmission Date: 20110219
  Serious: Yes (Other)
  Sender: FDA-Public Use
  Company Number: US-ELI_LILLY_AND_COMPANY-US201008005897

PATIENT
  Age: 75 Year
  Sex: Male

DRUGS (3)
  1. EFFIENT [Suspect]
     Indication: CORONARY ARTERIAL STENT INSERTION
     Dosage: 10 MG, DAILY (1/D)
     Dates: start: 20100101
  2. BETA BLOCKING AGENTS [Concomitant]
  3. ASPIRIN [Concomitant]

REACTIONS (2)
  - BLADDER CANCER [None]
  - DRUG DOSE OMISSION [None]
